FAERS Safety Report 15300497 (Version 1)
Quarter: 2018Q3

REPORT INFORMATION
  Report Type: Spontaneous
  Country: SE (occurrence: SE)
  Receive Date: 20180821
  Receipt Date: 20180821
  Transmission Date: 20181010
  Serious: Yes (Other)
  Sender: FDA-Public Use
  Company Number: SE-JNJFOC-20180820398

PATIENT
  Age: 46 Year
  Sex: Male

DRUGS (8)
  1. PARAFLEX [Concomitant]
     Active Substance: CHLORZOXAZONE
     Route: 065
  2. BEHEPAN [Suspect]
     Active Substance: HYDROXOCOBALAMIN
     Indication: FATIGUE
     Route: 065
     Dates: end: 2018
  3. VENTOLINE [Concomitant]
     Active Substance: ALBUTEROL
     Route: 065
  4. NEXIUM [Concomitant]
     Active Substance: ESOMEPRAZOLE MAGNESIUM
     Route: 065
  5. TRAMADOL HYDROCHLORIDE. [Suspect]
     Active Substance: TRAMADOL HYDROCHLORIDE
     Indication: PAIN
     Route: 065
     Dates: start: 2000, end: 201801
  6. THERALEN [Concomitant]
     Active Substance: TRIMEPRAZINE
     Route: 065
  7. SUMATRIPTAN. [Suspect]
     Active Substance: SUMATRIPTAN
     Indication: MIGRAINE
     Route: 065
  8. ALVEDON [Concomitant]
     Active Substance: ACETAMINOPHEN
     Route: 065

REACTIONS (4)
  - Drug abuse [Not Recovered/Not Resolved]
  - Rash [Not Recovered/Not Resolved]
  - Headache [Not Recovered/Not Resolved]
  - Libido decreased [Not Recovered/Not Resolved]

NARRATIVE: CASE EVENT DATE: 20130826
